FAERS Safety Report 7737520-8 (Version None)
Quarter: 2011Q3

REPORT INFORMATION
  Report Type: 
  Country: None (occurrence: None)
  Receive Date: 20110902
  Receipt Date: 20110824
  Transmission Date: 20111222
  Serious: Yes (Hospitalization, Disabling, Other)
  Sender: FDA-Public Use
  Company Number: 2011MA012552

PATIENT
  Age: 19 Year
  Sex: Male
  Weight: 57 kg

DRUGS (2)
  1. PHENYTOIN [Suspect]
     Indication: EPILEPSY
     Dosage: 200 MG;QD
  2. METHYLCOBALAMIN (NO PREF. NAME) [Suspect]
     Indication: GUILLAIN-BARRE SYNDROME
     Dosage: 1.5 MG

REACTIONS (6)
  - DEMYELINATING POLYNEUROPATHY [None]
  - ANTICONVULSANT DRUG LEVEL DECREASED [None]
  - TOXICITY TO VARIOUS AGENTS [None]
  - CONVULSION [None]
  - INCORRECT DOSE ADMINISTERED [None]
  - METHYLENETETRAHYDROFOLATE REDUCTASE DEFICIENCY [None]
